FAERS Safety Report 4287038-2 (Version None)
Quarter: 2004Q1

REPORT INFORMATION
  Report Type: 
  Country: None (occurrence: None)
  Receive Date: 20040204
  Receipt Date: 20040126
  Transmission Date: 20041129
  Serious: Yes (Life-Threatening)
  Sender: FDA-Public Use
  Company Number: JP-JNJFOC-20040104879

PATIENT
  Age: 71 Year
  Sex: Male

DRUGS (5)
  1. OFLOXACIN [Suspect]
     Indication: DRUG USE FOR UNKNOWN INDICATION
     Dosage: 200 MG, INTRAVENOUS
     Route: 042
     Dates: start: 20031006, end: 20031007
  2. KETOPROFEN [Suspect]
     Indication: DRUG USE FOR UNKNOWN INDICATION
     Dosage: INTRAVENOUS
     Route: 042
     Dates: end: 20031007
  3. GENTAMICIN SULFATE [Suspect]
     Dosage: INTRAVENOUS
     Route: 042
     Dates: end: 20031007
  4. PERFALGAN (ALL OTHER THERAPEUTIC PRODUTS) SOLUTION [Suspect]
     Dosage: INTRAVENOUS
     Route: 042
     Dates: end: 20031007
  5. MORPHINE [Concomitant]

REACTIONS (4)
  - DIALYSIS [None]
  - RENAL FAILURE ACUTE [None]
  - RENAL TUBULAR NECROSIS [None]
  - RHABDOMYOLYSIS [None]
